FAERS Safety Report 12618979 (Version 1)
Quarter: 2016Q3

REPORT INFORMATION
  Report Type: Spontaneous
  Country: CN (occurrence: CN)
  Receive Date: 20160803
  Receipt Date: 20160803
  Transmission Date: 20161109
  Serious: Yes (Other)
  Sender: FDA-Public Use
  Company Number: CN-JNJFOC-20160728333

PATIENT
  Age: 2 Year
  Sex: Female

DRUGS (2)
  1. REMICADE [Suspect]
     Active Substance: INFLIXIMAB
     Indication: CROHN^S DISEASE
     Route: 042
  2. REMICADE [Suspect]
     Active Substance: INFLIXIMAB
     Indication: CROHN^S DISEASE
     Dosage: THIRD DOSE
     Route: 042
     Dates: start: 20160729

REACTIONS (7)
  - Dyspnoea [Unknown]
  - Cyanosis [Unknown]
  - Hyperhidrosis [Unknown]
  - Heart rate increased [Unknown]
  - Skin discolouration [Unknown]
  - Infusion related reaction [Unknown]
  - Peripheral coldness [Unknown]

NARRATIVE: CASE EVENT DATE: 20160729
